FAERS Safety Report 11845174 (Version 1)
Quarter: 2015Q4

REPORT INFORMATION
  Report Type: Spontaneous
  Country: US (occurrence: None)
  Receive Date: 20151216
  Receipt Date: 20151216
  Transmission Date: 20160305
  Serious: Yes (Other)
  Sender: FDA-Public Use
  Company Number: None

PATIENT
  Age: 56 Year
  Sex: Male

DRUGS (2)
  1. REMICADE [Suspect]
     Active Substance: INFLIXIMAB
     Indication: PSORIASIS
     Dosage: 5MG/KG?INFUSION?EVERT 8 WEEKS
     Route: 042
     Dates: start: 201409, end: 201507
  2. REMICADE [Suspect]
     Active Substance: INFLIXIMAB
     Indication: PSORIATIC ARTHROPATHY
     Dosage: 5MG/KG?INFUSION?EVERT 8 WEEKS
     Route: 042
     Dates: start: 201409, end: 201507

REACTIONS (3)
  - Psychotic disorder [None]
  - Confusional state [None]
  - Motor dysfunction [None]

NARRATIVE: CASE EVENT DATE: 20150715
